FAERS Safety Report 10586716 (Version 1)
Quarter: 2014Q4

REPORT INFORMATION
  Report Type: Spontaneous
  Country: US (occurrence: None)
  Receive Date: 20141114
  Receipt Date: 20141114
  Transmission Date: 20150529
  Serious: Yes (Disabling)
  Sender: FDA-Public Use
  Company Number: None

PATIENT
  Age: 62 Year
  Sex: Female
  Weight: 63.5 kg

DRUGS (1)
  1. AZITHROMYCIN [Suspect]
     Active Substance: AZITHROMYCIN ANHYDROUS
     Indication: SINUSITIS
     Dosage: STRENGTH: NOT FOR SURE, I BELIEVE 200MG.  1 PILL, ONCE DAILY, TAKEN BY MOUTH
     Route: 048
     Dates: start: 20140815, end: 20140819

REACTIONS (5)
  - Quality of life decreased [None]
  - Arthralgia [None]
  - Tendon disorder [None]
  - Ligament disorder [None]
  - Joint swelling [None]

NARRATIVE: CASE EVENT DATE: 20140815
